FAERS Safety Report 10057958 (Version 1)
Quarter: 2014Q2

REPORT INFORMATION
  Report Type: Spontaneous
  Country: GB (occurrence: None)
  Receive Date: 20140402
  Receipt Date: 20140402
  Transmission Date: 20141212
  Serious: Yes (Other)
  Sender: FDA-Public Use
  Company Number: AUR-APL-2014-03900

PATIENT
  Age: 32 Year
  Sex: Female

DRUGS (7)
  1. ALENDRONIC ACID (ALENDRONIC ACID) [Suspect]
     Indication: PRODUCT USED FOR UNKNOWN INDICATION
  2. MONTELUKAST (MONTELUKAST) [Suspect]
     Indication: PRODUCT USED FOR UNKNOWN INDICATION
  3. FEXOFENADINE (FEXOFENADINE) (FEXOFENADINE) [Suspect]
     Indication: ASTHMA
     Route: 048
  4. SPIRIVA [Suspect]
     Indication: ASTHMA
  5. SYMBICORT (BUDESONIDE W/FORMOTEROL FUMARATE) [Suspect]
     Indication: ASTHMA
  6. THEOPHYLLINE (THEOPHYLLINE) [Suspect]
     Indication: ASTHMA
     Route: 048
  7. XOLAIR (OMALIZUMAB) [Suspect]
     Indication: ASTHMA
     Route: 058

REACTIONS (5)
  - Pregnancy [None]
  - Exposure during pregnancy [None]
  - Caesarean section [None]
  - Haemorrhage [None]
  - Skin infection [None]
